FAERS Safety Report 8927873 (Version 2)
Quarter: 2012Q4

REPORT INFORMATION
  Report Type: 
  Country: GR (occurrence: GR)
  Receive Date: 20121127
  Receipt Date: 20121212
  Transmission Date: 20130627
  Serious: No
  Sender: FDA-Public Use
  Company Number: GR-ELI_LILLY_AND_COMPANY-GR201211001717

PATIENT
  Age: 30 Year
  Sex: Male

DRUGS (2)
  1. CYMBALTA [Suspect]
     Indication: DEPRESSION
     Dosage: 60 mg, qd
     Route: 048
     Dates: start: 20121015, end: 20121023
  2. CYMBALTA [Suspect]
     Dosage: 120 mg, qd
     Dates: start: 20121024, end: 20121101

REACTIONS (1)
  - No adverse event [Not Recovered/Not Resolved]
